FAERS Safety Report 17566492 (Version 1)
Quarter: 2020Q1

REPORT INFORMATION
  Report Type: Spontaneous
  Country: US (occurrence: US)
  Receive Date: 20200320
  Receipt Date: 20200320
  Transmission Date: 20200409
  Serious: Yes (Other)
  Sender: FDA-Public Use
  Company Number: None

PATIENT
  Age: 65 Year
  Sex: Male
  Weight: 76.5 kg

DRUGS (13)
  1. MULTIVITAMIN [Concomitant]
     Active Substance: VITAMINS
  2. OMEPRAZOLE 40MG [Concomitant]
     Active Substance: OMEPRAZOLE
  3. TERAZOSIN 10MG [Concomitant]
  4. OXYCODONE 10MG [Concomitant]
     Active Substance: OXYCODONE
  5. ONDANSETRON 4MG [Concomitant]
     Active Substance: ONDANSETRON
  6. CBD OIL [Concomitant]
     Active Substance: CANNABIDIOL\HERBALS
  7. ACYCLOVIR 400MG [Concomitant]
     Active Substance: ACYCLOVIR
  8. DEXAMETHASONE 4MG [Concomitant]
     Active Substance: DEXAMETHASONE
  9. VITAMIN B12 500MCG [Concomitant]
  10. MIDODRINE 2.5MG [Concomitant]
  11. MUCINEX DM 30-600MG [Concomitant]
  12. CYCLOPHOSPHAMIDE. [Suspect]
     Active Substance: CYCLOPHOSPHAMIDE
     Indication: PLASMA CELL MYELOMA
     Dosage: ?          OTHER FREQUENCY:WEEKLY;?
     Dates: start: 20190830, end: 20200320
  13. TYLENOL [Concomitant]
     Active Substance: ACETAMINOPHEN

REACTIONS (1)
  - Disease progression [None]

NARRATIVE: CASE EVENT DATE: 20200320
